FAERS Safety Report 7128061-X (Version None)
Quarter: 2010Q4

REPORT INFORMATION
  Report Type: 
  Country: None (occurrence: None)
  Receive Date: 20101130
  Receipt Date: 20101117
  Transmission Date: 20110411
  Serious: Yes (Hospitalization)
  Sender: FDA-Public Use
  Company Number: GB-JNJFOC-20101106827

PATIENT
  Age: 51 Year
  Sex: Female

DRUGS (1)
  1. CO-CODAMOL [Suspect]
     Indication: MUSCULOSKELETAL PAIN
     Route: 065

REACTIONS (2)
  - CEREBROVASCULAR SPASM [None]
  - MIGRAINE [None]
